FAERS Safety Report 22110971 (Version 1)
Quarter: 2023Q1

REPORT INFORMATION
  Report Type: Spontaneous
  Country: US (occurrence: US)
  Receive Date: 20230317
  Receipt Date: 20230317
  Transmission Date: 20230418
  Serious: Yes (Death)
  Sender: FDA-Public Use
  Company Number: US-La Jolla Pharmaceutical Company-2023TP000013

PATIENT
  Age: 56 Year
  Sex: Female

DRUGS (6)
  1. XERAVA [Suspect]
     Active Substance: ERAVACYCLINE DIHYDROCHLORIDE
     Indication: Stenotrophomonas infection
     Route: 042
  2. XERAVA [Suspect]
     Active Substance: ERAVACYCLINE DIHYDROCHLORIDE
     Indication: Enterococcal infection
  3. AMPICILLIN SODIUM\SULBACTAM SODIUM [Concomitant]
     Active Substance: AMPICILLIN SODIUM\SULBACTAM SODIUM
     Indication: Stenotrophomonas infection
  4. AMPICILLIN SODIUM\SULBACTAM SODIUM [Concomitant]
     Active Substance: AMPICILLIN SODIUM\SULBACTAM SODIUM
     Indication: Enterococcal infection
  5. MEROPENEM [Concomitant]
     Active Substance: MEROPENEM
     Indication: Stenotrophomonas infection
  6. MEROPENEM [Concomitant]
     Active Substance: MEROPENEM
     Indication: Enterococcal infection

REACTIONS (2)
  - Multiple organ dysfunction syndrome [Fatal]
  - Off label use [Unknown]
